FAERS Safety Report 5534214-4 (Version None)
Quarter: 2007Q4

REPORT INFORMATION
  Report Type: 
  Country: None (occurrence: None)
  Receive Date: 20071205
  Receipt Date: 20071126
  Transmission Date: 20080405
  Serious: Yes (Other)
  Sender: FDA-Public Use
  Company Number: US-ABBOTT-07P-163-0425024-00

PATIENT
  Age: 26 Year
  Sex: Female

DRUGS (3)
  1. KALETRA [Suspect]
     Indication: ANTIRETROVIRAL THERAPY
     Dosage: 200/50 MG, FOUR TABS DAILY
     Route: 048
     Dates: start: 20070509
  2. LAMIVUDINE + ZIDOVUDINE [Suspect]
     Indication: ANTIRETROVIRAL THERAPY
     Route: 048
     Dates: start: 20070509, end: 20070605
  3. TRUVADA [Suspect]
     Indication: ANTIRETROVIRAL THERAPY
     Dosage: 200/300 MG DAILY
     Route: 048
     Dates: start: 20070605

REACTIONS (1)
  - ABORTION INDUCED [None]
